FAERS Safety Report 4381451-0 (Version None)
Quarter: 2004Q2

REPORT INFORMATION
  Report Type: 
  Country: None (occurrence: None)
  Receive Date: 20040616
  Receipt Date: 20040604
  Transmission Date: 20050107
  Serious: Yes (Hospitalization)
  Sender: FDA-Public Use
  Company Number: ALM02004022

PATIENT
  Sex: Female

DRUGS (3)
  1. AXERT [Suspect]
     Indication: SEROTONIN SYNDROME
  2. NARDIL [Concomitant]
  3. DOXEPIN HCL [Concomitant]

REACTIONS (6)
  - DRUG TOXICITY [None]
  - HYPERTENSION [None]
  - MYDRIASIS [None]
  - PYREXIA [None]
  - SEROTONIN SYNDROME [None]
  - TACHYCARDIA [None]
